FAERS Safety Report 5140901-2 (Version None)
Quarter: 2006Q4

REPORT INFORMATION
  Report Type: 
  Country: None (occurrence: None)
  Receive Date: 20060905
  Receipt Date: 20060706
  Transmission Date: 20070319
  Serious: No
  Sender: FDA-Public Use
  Company Number: 35814

PATIENT
  Age: 73 Year
  Sex: Female

DRUGS (3)
  1. NEVANAC [Suspect]
     Indication: PROPHYLAXIS
  2. VIGAMOX [Suspect]
     Indication: PROPHYLAXIS
  3. MAXIDEX [Suspect]
     Indication: PROPHYLAXIS

REACTIONS (2)
  - BLEPHAROSPASM [None]
  - DIZZINESS [None]
